FAERS Safety Report 9364947 (Version 2)
Quarter: 2016Q1

REPORT INFORMATION
  Report Type: Spontaneous
  Country: US (occurrence: US)
  Receive Date: 20130624
  Receipt Date: 20160210
  Transmission Date: 20160526
  Serious: Yes (Congenital Anomaly, Other)
  Sender: FDA-Public Use
  Company Number: US-ALLERGAN-1308907US

PATIENT
  Sex: Male

DRUGS (1)
  1. BOTOX COSMETIC [Suspect]
     Active Substance: ONABOTULINUMTOXINA
     Indication: MATERNAL EXPOSURE DURING PREGNANCY
     Route: 065

REACTIONS (4)
  - Body height below normal [Unknown]
  - Epiphyses delayed fusion [Unknown]
  - Small for dates baby [Unknown]
  - Maternal drugs affecting foetus [Unknown]
